FAERS Safety Report 5160463-3 (Version None)
Quarter: 2006Q4

REPORT INFORMATION
  Report Type: 
  Country: None (occurrence: None)
  Receive Date: 20061121
  Receipt Date: 20061107
  Transmission Date: 20070319
  Serious: Yes (Hospitalization, Disabling)
  Sender: FDA-Public Use
  Company Number: CERZ-11363

PATIENT
  Age: 28 Year
  Sex: Female

DRUGS (3)
  1. CEREZYME [Suspect]
     Indication: GAUCHER'S DISEASE
     Dosage: 60 U/KG Q2WKS IV
     Route: 042
     Dates: start: 19970414
  2. INSULIN [Concomitant]
  3. VERELAN [Concomitant]

REACTIONS (5)
  - ACCIDENT [None]
  - FEMUR FRACTURE [None]
  - FRACTURE NONUNION [None]
  - MEDICAL DEVICE COMPLICATION [None]
  - OSTEONECROSIS [None]
